FAERS Safety Report 4750336-X (Version None)
Quarter: 2005Q3

REPORT INFORMATION
  Report Type: 
  Country: None (occurrence: None)
  Receive Date: 20050818
  Receipt Date: 20050809
  Transmission Date: 20060218
  Serious: Yes (Hospitalization)
  Sender: FDA-Public Use
  Company Number: 2005JP000201

PATIENT
  Age: 42 Year
  Sex: Female
  Weight: 44.8 kg

DRUGS (4)
  1. PROGRAF [Suspect]
     Indication: RENAL TRANSPLANT
     Dosage: 13.00 MG, UNKNOWN/D, ORAL
     Route: 048
     Dates: start: 20030713, end: 20040329
  2. CELLCEPT [Suspect]
     Indication: RENAL TRANSPLANT
     Dosage: 500.00 MG, BID, ORAL : ORAL
     Route: 048
     Dates: start: 20030713, end: 20030917
  3. CELLCEPT [Suspect]
     Indication: RENAL TRANSPLANT
     Dosage: 500.00 MG, BID, ORAL : ORAL
     Route: 048
     Dates: start: 20050301
  4. MEDROL [Concomitant]

REACTIONS (3)
  - APLASIA PURE RED CELL [None]
  - ERYTHEMA INFECTIOSUM [None]
  - INFECTION IN AN IMMUNOCOMPROMISED HOST [None]
